FAERS Safety Report 5198154-5 (Version None)
Quarter: 2006Q4

REPORT INFORMATION
  Report Type: 
  Country: None (occurrence: None)
  Receive Date: 20061228
  Receipt Date: 20061228
  Transmission Date: 20070319
  Serious: Yes (Life-Threatening, Hospitalization)
  Sender: FDA-Public Use
  Company Number: None

PATIENT
  Sex: Female

DRUGS (10)
  1. AVASTIN [Suspect]
     Indication: OLIGODENDROGLIOMA
     Dosage: 340MG EVERY 2 WEEKS IV DRIP
     Route: 041
     Dates: start: 20050913, end: 20061025
  2. LOVENOX [Concomitant]
  3. WARFARIN SODIUM [Concomitant]
  4. LISINOPRIL [Concomitant]
  5. FENTANYL TRANSDERMAL SYSTEM [Concomitant]
  6. ROCEPHIN [Concomitant]
  7. BACLOFEN [Concomitant]
  8. DILANTIN [Concomitant]
  9. ACETAMINOPHEN AND OXYCODONE HCL [Concomitant]
  10. KENALOG/LIDOCAINE [Concomitant]

REACTIONS (5)
  - BRAIN STEM INFARCTION [None]
  - CEREBRAL HAEMORRHAGE [None]
  - ISCHAEMIC STROKE [None]
  - JUGULAR VEIN THROMBOSIS [None]
  - SUBARACHNOID HAEMORRHAGE [None]
